FAERS Safety Report 14892822 (Version 4)
Quarter: 2018Q2

REPORT INFORMATION
  Report Type: Report from Study
  Country: MX (occurrence: MX)
  Receive Date: 20180514
  Receipt Date: 20180523
  Transmission Date: 20180711
  Serious: Yes (Other)
  Sender: FDA-Public Use
  Company Number: PHHY2018MX003481

PATIENT
  Sex: Female
  Weight: 76 kg

DRUGS (15)
  1. DORIXINA [Concomitant]
     Indication: ANALGESIC THERAPY
     Dosage: 2 DF, QD
     Route: 048
  2. LIPITOR [Concomitant]
     Active Substance: ATORVASTATIN CALCIUM
     Indication: BLOOD TRIGLYCERIDES ABNORMAL
     Dosage: 1 DF, QD
     Route: 048
  3. TRAVATAN [Suspect]
     Active Substance: TRAVOPROST
     Indication: INTRAOCULAR PRESSURE INCREASED
     Dosage: 1 GTT, QD IN EACH EYE
     Route: 047
  4. SYSTANE (HYPROMELLOSE 2910 (4000 MPA.S)) [Suspect]
     Active Substance: HYPROMELLOSE 2910 (4000 MPA.S)
     Indication: EYE LUBRICATION THERAPY
     Dosage: 2 GTT, TID (IN EACH EYE)
     Route: 047
  5. NEUROTIN [Concomitant]
     Active Substance: GABAPENTIN
     Indication: NEUROPATHY PERIPHERAL
     Dosage: 2 DF, QD
     Route: 048
  6. PROPANOLOL [Concomitant]
     Active Substance: PROPRANOLOL HYDROCHLORIDE
     Indication: VARICES OESOPHAGEAL
     Dosage: 2 DF, Q8H
     Route: 048
  7. METROTEX [Concomitant]
     Indication: PRODUCT USED FOR UNKNOWN INDICATION
     Route: 065
  8. PANTOPRAZOLE [Concomitant]
     Active Substance: PANTOPRAZOLE
     Indication: PROPHYLAXIS
     Dosage: 2 DF, QD (1 TABLET IN MORNING AND 1 TABLET IN NIGHT)
     Route: 048
  9. ESPAVEN [Concomitant]
     Indication: GASTRIC DISORDER
     Dosage: 1 DF, QD (AFTER EACH FOOOD)
     Route: 048
  10. BENTYL [Concomitant]
     Active Substance: DICYCLOMINE HYDROCHLORIDE
     Indication: GASTRIC DISORDER
     Dosage: 3 DF, QD
     Route: 048
  11. COZAAR [Concomitant]
     Active Substance: LOSARTAN POTASSIUM
     Indication: HEART RATE INCREASED
  12. LACTULAX [Concomitant]
     Indication: CONSTIPATION
     Dosage: UNK
     Route: 048
  13. PROPANOLOL [Concomitant]
     Active Substance: PROPRANOLOL HYDROCHLORIDE
     Indication: PULSE ABNORMAL
  14. COZAAR [Concomitant]
     Active Substance: LOSARTAN POTASSIUM
     Indication: BLOOD PRESSURE ABNORMAL
     Dosage: 1 DF, QD
     Route: 048
  15. LASILACTON [Concomitant]
     Active Substance: FUROSEMIDE\SPIRONOLACTONE
     Indication: URINARY RETENTION
     Dosage: 1 DF, QD
     Route: 048

REACTIONS (13)
  - Gait disturbance [Unknown]
  - Hand deformity [Unknown]
  - Cataract [Recovered/Resolved with Sequelae]
  - Varices oesophageal [Not Recovered/Not Resolved]
  - Concomitant disease aggravated [Not Recovered/Not Resolved]
  - Femur fracture [Recovered/Resolved with Sequelae]
  - Tooth loss [Unknown]
  - Knee deformity [Unknown]
  - Hip fracture [Recovered/Resolved with Sequelae]
  - Thrombosis [Not Recovered/Not Resolved]
  - Infection [Unknown]
  - Fall [Recovered/Resolved with Sequelae]
  - Expired product administered [Unknown]

NARRATIVE: CASE EVENT DATE: 2015
